FAERS Safety Report 10329510 (Version 2)
Quarter: 2014Q4

REPORT INFORMATION
  Report Type: Report from Study
  Country: DE (occurrence: DE)
  Receive Date: 20140721
  Receipt Date: 20141003
  Transmission Date: 20150528
  Serious: Yes (Hospitalization)
  Sender: FDA-Public Use
  Company Number: DE-TEVA-493848GER

PATIENT
  Age: 67 Year
  Sex: Female
  Weight: 60.5 kg

DRUGS (2)
  1. CARBOPLATIN-GRY 10 MG/ML [Suspect]
     Active Substance: CARBOPLATIN
     Indication: BREAST CANCER FEMALE
     Dosage: DOSAGE REGIME: D1/8 Q3W; LAST DOSE PRIOR TO THE SAE: 30-JUN-2014
     Route: 042
     Dates: start: 20140519
  2. ABRAXANE [Suspect]
     Active Substance: PACLITAXEL
     Indication: BREAST CANCER FEMALE
     Dosage: DOSAGE REGIME: D1/8 Q3W; LAST DOSE PRIOR TO THE SAE: 30-JUN-2014
     Route: 042
     Dates: start: 20140519

REACTIONS (1)
  - Seizure [Recovered/Resolved]

NARRATIVE: CASE EVENT DATE: 20140704
